FAERS Safety Report 15325322 (Version 2)
Quarter: 2018Q3

REPORT INFORMATION
  Report Type: Spontaneous
  Country: US (occurrence: US)
  Receive Date: 20180828
  Receipt Date: 20180831
  Transmission Date: 20181010
  Serious: Yes (Death, Other)
  Sender: FDA-Public Use
  Company Number: US-JNJFOC-20180837245

PATIENT
  Sex: Male

DRUGS (9)
  1. TIMOLOL MALEATE. [Concomitant]
     Active Substance: TIMOLOL MALEATE
  2. TAMSULOSIN [Concomitant]
     Active Substance: TAMSULOSIN
  3. METOPROLOL. [Concomitant]
     Active Substance: METOPROLOL
  4. OMEPRAZOLE. [Concomitant]
     Active Substance: OMEPRAZOLE
  5. CALCIUM CITRATE W/ERGOCALCIFEROL [Concomitant]
  6. IMBRUVICA [Suspect]
     Active Substance: IBRUTINIB
     Indication: NON-HODGKIN^S LYMPHOMA
     Route: 048
     Dates: start: 2018
  7. LUMIGAN [Concomitant]
     Active Substance: BIMATOPROST
  8. WARFARIN [Concomitant]
     Active Substance: WARFARIN
  9. LEVOTHYROXINE. [Concomitant]
     Active Substance: LEVOTHYROXINE

REACTIONS (3)
  - Central nervous system lesion [Unknown]
  - Metastases to liver [Recovering/Resolving]
  - Disease progression [Fatal]
